FAERS Safety Report 8494873-3 (Version None)
Quarter: 2012Q3

REPORT INFORMATION
  Report Type: 
  Country: None (occurrence: None)
  Receive Date: 20120709
  Receipt Date: 20120627
  Transmission Date: 20120928
  Serious: Yes (Hospitalization)
  Sender: FDA-Public Use
  Company Number: RU-NOVOPROD-354831

PATIENT
  Age: 52 Year
  Sex: Female
  Weight: 83 kg

DRUGS (7)
  1. VICTOZA [Suspect]
     Indication: TYPE 2 DIABETES MELLITUS
     Dosage: 0.6 MG, QD
     Route: 058
     Dates: start: 20111001, end: 20120619
  2. METFORMIN HCL [Concomitant]
     Dosage: 850 MG, QD
     Route: 048
  3. DIUVER [Concomitant]
     Dosage: 5 MG, QD
     Route: 048
  4. CLOPIDOGREL [Concomitant]
     Dosage: 1 TAB, QD
     Route: 048
  5. VICTOZA [Suspect]
     Indication: OBESITY
     Dosage: 0.6 MG, QD
     Route: 058
     Dates: start: 20120624
  6. TRICOR [Concomitant]
     Dosage: 145 MG, QD
  7. LISINOPRIL [Concomitant]
     Dosage: 30 MG, QD
     Route: 048

REACTIONS (2)
  - ABDOMINAL PAIN [None]
  - WEIGHT DECREASED [None]
